FAERS Safety Report 24267500 (Version 1)
Quarter: 2024Q3

REPORT INFORMATION
  Report Type: Spontaneous
  Country: US (occurrence: US)
  Receive Date: 20240830
  Receipt Date: 20240830
  Transmission Date: 20241016
  Serious: No
  Sender: Haleon PLC
  Company Number: US-HALEON-2194309

PATIENT

DRUGS (1)
  1. FLONASE [Suspect]
     Active Substance: FLUTICASONE PROPIONATE
     Indication: Hypersensitivity
     Dates: start: 20240825, end: 20240828

REACTIONS (4)
  - Hypersensitivity [Unknown]
  - Eye pruritus [Unknown]
  - Pruritus [Unknown]
  - Lip swelling [Unknown]

NARRATIVE: CASE EVENT DATE: 20240827
